FAERS Safety Report 11552209 (Version 1)
Quarter: 2015Q3

REPORT INFORMATION
  Report Type: Spontaneous
  Country: US (occurrence: None)
  Receive Date: 20150924
  Receipt Date: 20150924
  Transmission Date: 20151125
  Serious: Yes (Disabling)
  Sender: FDA-Public Use
  Company Number: None

PATIENT
  Age: 47 Year
  Sex: Female
  Weight: 99.79 kg

DRUGS (5)
  1. NASONEX [Suspect]
     Active Substance: MOMETASONE FUROATE
     Indication: PRODUCT USED FOR UNKNOWN INDICATION
     Dosage: 2 SPRAY (EACH NOSTRIL PER DAY), SPRAYED INTO NOSE
     Route: 045
  2. LISINOPRIL. [Concomitant]
     Active Substance: LISINOPRIL
  3. LOSARTAN. [Concomitant]
     Active Substance: LOSARTAN
  4. CYMBALTA [Concomitant]
     Active Substance: DULOXETINE HYDROCHLORIDE
  5. THYROID MEDICATION [Concomitant]
     Active Substance: UNSPECIFIED INGREDIENT

REACTIONS (6)
  - Schizophrenia [None]
  - Pain [None]
  - Hyperhidrosis [None]
  - Mental status changes [None]
  - Screaming [None]
  - Suicidal ideation [None]

NARRATIVE: CASE EVENT DATE: 20051226
